FAERS Safety Report 9347852 (Version 1)
Quarter: 2013Q2

REPORT INFORMATION
  Report Type: Spontaneous
  Country: US (occurrence: US)
  Receive Date: 20130614
  Receipt Date: 20130614
  Transmission Date: 20140414
  Serious: No
  Sender: FDA-Public Use
  Company Number: US-BAYER-2013-070534

PATIENT
  Sex: Female
  Weight: 83.9 kg

DRUGS (9)
  1. BETASERON [Suspect]
     Dosage: 0.3 MG, UNK
  2. SYNTHROID [Concomitant]
     Dosage: 175 ?G, UNK
  3. EXFORGE HCT [Concomitant]
  4. ASPIRIN [Concomitant]
     Dosage: 81 MG, UNK
  5. NORTRIPTYLIN [Concomitant]
     Dosage: 10 MG, UNK
  6. SIMVASTATIN [Concomitant]
     Dosage: 10 MG, UNK
  7. ZANAFLEX [Concomitant]
     Dosage: 4 MG, UNK
  8. VITAMIN D [Concomitant]
     Dosage: 1000 IU, UNK
  9. VITAMIN B12 NOS [Concomitant]
     Dosage: 1000

REACTIONS (1)
  - Injection site reaction [Unknown]
